FAERS Safety Report 5582011-6 (Version None)
Quarter: 2007Q4

REPORT INFORMATION
  Report Type: 
  Country: None (occurrence: None)
  Receive Date: 20071130
  Receipt Date: 20070220
  Transmission Date: 20080405
  Serious: Yes (Other)
  Sender: FDA-Public Use
  Company Number: WAES 0702USA03757

PATIENT
  Age: 59 Year
  Sex: Female

DRUGS (8)
  1. FOSAMAX [Suspect]
     Indication: OSTEOPOROSIS
     Dosage: 70 MG/WKY/PO
     Route: 048
     Dates: end: 20060820
  2. CELEXA [Concomitant]
  3. COZAAR [Concomitant]
  4. DURAGESIC-100 [Concomitant]
  5. NEURONTIN [Concomitant]
  6. CALCIUM [Concomitant]
  7. CLONAZEPAM [Concomitant]
  8. VITAMIN D [Concomitant]

REACTIONS (1)
  - OSTEONECROSIS [None]
